FAERS Safety Report 11598896 (Version 1)
Quarter: 2015Q4

REPORT INFORMATION
  Report Type: Spontaneous
  Country: CA (occurrence: CA)
  Receive Date: 20151006
  Receipt Date: 20151006
  Transmission Date: 20160304
  Serious: Yes (Other)
  Sender: FDA-Public Use
  Company Number: CA-BAYER-2015-434826

PATIENT
  Age: 66 Year
  Sex: Female

DRUGS (1)
  1. RESTORALAX [Suspect]
     Active Substance: POLYETHYLENE GLYCOL 3350
     Indication: CONSTIPATION
     Dosage: UNK
     Dates: start: 201509

REACTIONS (3)
  - Anuria [Recovered/Resolved]
  - Abasia [None]
  - Visual impairment [None]

NARRATIVE: CASE EVENT DATE: 201509
